FAERS Safety Report 8461117-8 (Version None)
Quarter: 2012Q2

REPORT INFORMATION
  Report Type: 
  Country: None (occurrence: None)
  Receive Date: 20120625
  Receipt Date: 20120619
  Transmission Date: 20120825
  Serious: No
  Sender: FDA-Public Use
  Company Number: US-PFIZER INC-2012134763

PATIENT
  Sex: Female
  Weight: 64.853 kg

DRUGS (4)
  1. BENAZEPRIL [Concomitant]
     Indication: HYPERTENSION
     Dosage: 10 MG, 1X/DAY (DAILY)
  2. SUTENT [Suspect]
     Indication: RENAL CANCER
     Dosage: 50 MG, 1X/DAY (DAILY)
     Dates: start: 20120601
  3. SUTENT [Suspect]
     Indication: METASTATIC RENAL CELL CARCINOMA
  4. SUTENT [Suspect]
     Indication: LUNG DISORDER

REACTIONS (5)
  - SEASONAL ALLERGY [None]
  - NASOPHARYNGITIS [None]
  - COUGH [None]
  - NAUSEA [None]
  - VOMITING [None]
